FAERS Safety Report 18841489 (Version 2)
Quarter: 2022Q4

REPORT INFORMATION
  Report Type: Report from Study
  Country: US (occurrence: US)
  Receive Date: 20210204
  Receipt Date: 20221017
  Transmission Date: 20230113
  Serious: Yes (Hospitalization, Other)
  Sender: FDA-Public Use
  Company Number: US-GILEAD-2021-0515345

PATIENT
  Age: 50 Year
  Sex: Female
  Weight: 58.503 kg

DRUGS (2)
  1. AMBRISENTAN [Suspect]
     Active Substance: AMBRISENTAN
     Indication: Pulmonary hypertension
     Dosage: 5 MG, QD
     Route: 065
     Dates: start: 20180420
  2. AMBRISENTAN [Suspect]
     Active Substance: AMBRISENTAN
     Dosage: 5 MG, BID
     Route: 048
     Dates: start: 20191101, end: 20210125

REACTIONS (4)
  - Positive airway pressure therapy [Unknown]
  - Respiratory arrest [Unknown]
  - Positive airway pressure therapy [Unknown]
  - Product use issue [Unknown]

NARRATIVE: CASE EVENT DATE: 20200727
